FAERS Safety Report 9222291 (Version 1)
Quarter: 2013Q2

REPORT INFORMATION
  Report Type: Spontaneous
  Country: JP (occurrence: JP)
  Receive Date: 20130410
  Receipt Date: 20130410
  Transmission Date: 20140414
  Serious: Yes (Hospitalization)
  Sender: FDA-Public Use
  Company Number: JP-AMGEN-JPNSP2013024389

PATIENT
  Age: 56 Year
  Sex: Male

DRUGS (9)
  1. MIMPARA [Suspect]
     Indication: HYPERPARATHYROIDISM SECONDARY
     Dosage: 25 MG, QD
     Route: 048
     Dates: start: 20130320, end: 20130322
  2. COVERSYL                           /00790702/ [Concomitant]
     Dosage: 4 MG, QD
     Route: 048
  3. HERBESSER R [Concomitant]
     Dosage: UNK
     Route: 048
  4. NORVASC [Concomitant]
     Dosage: 5 MG, QD
     Route: 048
  5. ADALAT CR [Concomitant]
     Dosage: 10 MG, UNK
     Route: 048
  6. OMEPRAL /00661201/ [Concomitant]
     Dosage: 20 MG, UNK
     Route: 048
  7. GASMOTIN [Concomitant]
     Dosage: 5 MG, TID
     Route: 048
  8. JUVELA                             /00110502/ [Concomitant]
     Dosage: UNK
     Route: 048
  9. MYSLEE [Concomitant]
     Dosage: 10 MG, UNK
     Route: 048

REACTIONS (2)
  - Shunt occlusion [Unknown]
  - Dizziness [Unknown]
